FAERS Safety Report 16355048 (Version 2)
Quarter: 2019Q4

REPORT INFORMATION
  Report Type: Spontaneous
  Country: JP (occurrence: JP)
  Receive Date: 20190524
  Receipt Date: 20191029
  Transmission Date: 20200122
  Serious: Yes (Other)
  Sender: FDA-Public Use
  Company Number: JP-009507513-1811JPN000729J

PATIENT
  Age: 48 Year
  Sex: Male

DRUGS (3)
  1. BRIDION [Suspect]
     Active Substance: SUGAMMADEX
     Dosage: 200 MILLIGRAM
     Route: 041
  2. SEVOFLURANE. [Concomitant]
     Active Substance: SEVOFLURANE
     Dosage: 249.91 MILLILITER
  3. BRIDION [Suspect]
     Active Substance: SUGAMMADEX
     Indication: NEUROMUSCULAR BLOCKADE REVERSAL
     Dosage: 200 MILLIGRAM, QD
     Route: 042

REACTIONS (5)
  - Recurrence of neuromuscular blockade [Recovered/Resolved]
  - Gaze palsy [Unknown]
  - Respiratory arrest [Unknown]
  - Blood pressure increased [Unknown]
  - Erythema [Recovering/Resolving]
